FAERS Safety Report 7032124-7 (Version None)
Quarter: 2010Q4

REPORT INFORMATION
  Report Type: 
  Country: None (occurrence: None)
  Receive Date: 20101007
  Receipt Date: 20091224
  Transmission Date: 20110411
  Serious: Yes (Hospitalization)
  Sender: FDA-Public Use
  Company Number: JP-BRISTOL-MYERS SQUIBB COMPANY-14910715

PATIENT
  Age: 71 Year
  Sex: Male
  Weight: 64 kg

DRUGS (11)
  1. CETUXIMAB [Suspect]
     Indication: HEAD AND NECK CANCER
     Dosage: CETUXIMAB 5MG/ML INTRAVENOUS INFUSION
     Route: 042
     Dates: start: 20091029, end: 20091217
  2. CISPLATIN [Suspect]
     Indication: HEAD AND NECK CANCER
     Dosage: 168 MG  (100 MG/M2 1 IN 3 WEEKS), DOSE REDUCED TO 134.4 MG/M2 (1 IN 3 WK)
     Route: 042
     Dates: start: 20091029
  3. FLUOROURACIL [Suspect]
     Indication: HEAD AND NECK CANCER
     Dosage: 6720MG/4DAYS  (1000 MG/M2 1 IN 3 WEEKS),  LATER DOSE REDUCED TO 5376 MG/M2
     Route: 042
     Dates: start: 20091029
  4. HIRUDOID [Concomitant]
     Indication: DRY SKIN
     Dates: start: 20091103
  5. ALMETA [Concomitant]
     Indication: RASH
     Dates: start: 20091104
  6. MAGNESIUM OXIDE [Concomitant]
     Indication: BLOOD MAGNESIUM ABNORMAL
     Route: 042
     Dates: start: 20091217, end: 20091217
  7. HACHIAZULE [Concomitant]
     Indication: STOMATITIS
     Dates: start: 20091029
  8. MYSER [Concomitant]
     Indication: RASH
     Dates: start: 20091105
  9. DRENISON [Concomitant]
     Indication: RASH
     Route: 062
     Dates: start: 20091211
  10. DEXART [Concomitant]
     Indication: ALLERGY PROPHYLAXIS
     Route: 042
     Dates: start: 20091217, end: 20091217
  11. CHLOR-TRIMETON [Concomitant]
     Indication: ALLERGY PROPHYLAXIS
     Route: 042
     Dates: start: 20091217, end: 20091217

REACTIONS (1)
  - SEPTIC SHOCK [None]
